FAERS Safety Report 8237581-6 (Version None)
Quarter: 2012Q1

REPORT INFORMATION
  Report Type: 
  Country: None (occurrence: None)
  Receive Date: 20120323
  Receipt Date: 20120308
  Transmission Date: 20120608
  Serious: Yes (Hospitalization, Other)
  Sender: FDA-Public Use
  Company Number: CIP11002417

PATIENT
  Age: 65 Year
  Sex: Female
  Weight: 86.3 kg

DRUGS (15)
  1. ALENDRONATE SODIUM [Suspect]
     Indication: OSTEOPOROSIS PROPHYLAXIS
     Dosage: DOSAGE/REGIMEN, ORAL
     Route: 048
  2. LEVAQUIN [Concomitant]
  3. ACTONEL [Suspect]
     Indication: OSTEOPOROSIS
     Dosage: 35 MG ONCE WEEKLY, ORAL ; 35 MG ONCE WEEKLY, ORAL
     Route: 048
     Dates: start: 20070611, end: 20071001
  4. ACTONEL [Suspect]
     Indication: OSTEOPENIA
     Dosage: 35 MG ONCE WEEKLY, ORAL ; 35 MG ONCE WEEKLY, ORAL
     Route: 048
     Dates: start: 20070611, end: 20071001
  5. ACTONEL [Suspect]
     Indication: OSTEOPOROSIS
     Dosage: 35 MG ONCE WEEKLY, ORAL ; 35 MG ONCE WEEKLY, ORAL
     Route: 048
     Dates: start: 20020712, end: 20030122
  6. ACTONEL [Suspect]
     Indication: OSTEOPENIA
     Dosage: 35 MG ONCE WEEKLY, ORAL ; 35 MG ONCE WEEKLY, ORAL
     Route: 048
     Dates: start: 20020712, end: 20030122
  7. FISH OIL (FISH OIL) [Concomitant]
  8. FOSAMAX [Suspect]
     Indication: OSTEOPENIA
     Dosage: 70 MG ONCE WEEKLY, ORAL ; 70 MG ONCE WEEKLY, ORAL
     Route: 048
     Dates: start: 20030122, end: 20060829
  9. FOSAMAX [Suspect]
     Indication: OSTEOPENIA
     Dosage: 70 MG ONCE WEEKLY, ORAL ; 70 MG ONCE WEEKLY, ORAL
     Route: 048
     Dates: start: 20010627, end: 20020325
  10. VITAMIN D [Concomitant]
  11. PRILOSEC [Concomitant]
  12. FOSAMAX [Suspect]
     Indication: OSTEOPENIA
     Dosage: 10 MG, ORAL
     Route: 048
     Dates: start: 20000908, end: 20010622
  13. ACTONEL [Suspect]
     Indication: OSTEOPENIA
     Dosage: 5 MG DAILY, ORAL
     Route: 048
     Dates: start: 20020530, end: 20020712
  14. CALTRATE /00751519/ (CALCIUM CARBONATE) [Concomitant]
  15. NIACIN FLUSH FREE (INOSITOL NICOTINATE) [Concomitant]

REACTIONS (8)
  - IMPAIRED HEALING [None]
  - FALL [None]
  - FEMUR FRACTURE [None]
  - BONE DISORDER [None]
  - LOW TURNOVER OSTEOPATHY [None]
  - STRESS FRACTURE [None]
  - DYSPEPSIA [None]
  - CATARACT OPERATION [None]
